FAERS Safety Report 5213832-7 (Version None)
Quarter: 2007Q1

REPORT INFORMATION
  Report Type: 
  Country: None (occurrence: None)
  Receive Date: 20070119
  Receipt Date: 20070110
  Transmission Date: 20070707
  Serious: Yes (Hospitalization, Disabling, Other)
  Sender: FDA-Public Use
  Company Number: US-PFIZER INC-2004070397

PATIENT
  Sex: Male

DRUGS (7)
  1. NEURONTIN [Suspect]
     Indication: BIPOLAR DISORDER
     Route: 048
     Dates: start: 19991002, end: 20040101
  2. NEURONTIN [Suspect]
     Indication: OBSESSIVE-COMPULSIVE DISORDER
  3. NEURONTIN [Suspect]
     Indication: ANXIETY
  4. NEURONTIN [Suspect]
     Indication: DEPRESSION
  5. CLONAZEPAM [Suspect]
     Indication: ILL-DEFINED DISORDER
     Route: 048
  6. PROZAC [Concomitant]
     Route: 048
  7. ESKALITH [Concomitant]
     Route: 048

REACTIONS (13)
  - AGITATION [None]
  - ALCOHOLISM [None]
  - ANGER [None]
  - ANXIETY [None]
  - BIPOLAR DISORDER [None]
  - DEPRESSION [None]
  - INJURY [None]
  - INTENTIONAL OVERDOSE [None]
  - OBSESSIVE-COMPULSIVE DISORDER [None]
  - SEXUAL DYSFUNCTION [None]
  - SOMNOLENCE [None]
  - SUICIDAL IDEATION [None]
  - SUICIDE ATTEMPT [None]
